FAERS Safety Report 4631812-7 (Version None)
Quarter: 2005Q2

REPORT INFORMATION
  Report Type: 
  Country: None (occurrence: None)
  Receive Date: 20050411
  Receipt Date: 20050330
  Transmission Date: 20051028
  Serious: Yes (Hospitalization)
  Sender: FDA-Public Use
  Company Number: US-JNJFOC-20050400181

PATIENT
  Sex: Female
  Weight: 52.16 kg

DRUGS (7)
  1. REMICADE [Suspect]
     Indication: RHEUMATOID ARTHRITIS
     Route: 042
     Dates: start: 20041202, end: 20050319
  2. LIPITOR [Concomitant]
  3. TOPROL-XL [Concomitant]
  4. PLAVIX [Concomitant]
  5. MOBIC [Concomitant]
  6. ARAVA [Concomitant]
  7. ASPIRIN [Concomitant]

REACTIONS (4)
  - ASTHENIA [None]
  - KNEE ARTHROPLASTY [None]
  - SKIN BACTERIAL INFECTION [None]
  - THERAPEUTIC RESPONSE DECREASED [None]
